FAERS Safety Report 9475099 (Version 1)
Quarter: 2013Q3

REPORT INFORMATION
  Report Type: Spontaneous
  Country: FR (occurrence: None)
  Receive Date: 20130820
  Receipt Date: 20130820
  Transmission Date: 20140515
  Serious: Yes (Hospitalization, Other)
  Sender: FDA-Public Use
  Company Number: ADR-2013-01395

PATIENT
  Age: 39 Year
  Sex: Female

DRUGS (11)
  1. BACLOFEN [Suspect]
     Indication: MUSCLE SPASTICITY
     Dates: start: 20130409
  2. OCRELIZUMAB [Suspect]
     Indication: MULTIPLE SCLEROSIS
     Dosage: 2INFUSIONS 14 DAYS APART
  3. AERIUS (DESLORATADINE) [Concomitant]
  4. METHYLPREDNISOLONE (METHYLPREDNISOLONE) [Concomitant]
  5. PARACETAMOL (PARACETAMOL) [Concomitant]
  6. CLARINASE (LORATADINE, PSEUDOEPHEDRINE SULFATE) [Concomitant]
  7. DEXA-RHINASPRAY (DEXAMETHASONE ISONICOTINATE, NEOMYCIN SULFATE, TRAMAZOLINE HYDROCHLORIDE) [Concomitant]
  8. GRACIAL (DESOGESTREL, ETHINYLESTRADIOL) [Concomitant]
  9. DAFALGAN (PARACETAMOL) [Concomitant]
  10. IMODIUM (LOPERAMIDE HYDROCHLORIDE) [Concomitant]
  11. NOVALGINE [Suspect]

REACTIONS (7)
  - Agranulocytosis [None]
  - Post lumbar puncture syndrome [None]
  - Pyrexia [None]
  - Oropharyngeal pain [None]
  - Asthenia [None]
  - Extensor plantar response [None]
  - C-reactive protein increased [None]
